FAERS Safety Report 20853250 (Version 1)
Quarter: 2022Q2

REPORT INFORMATION
  Report Type: Spontaneous
  Country: US (occurrence: US)
  Receive Date: 20220520
  Receipt Date: 20220520
  Transmission Date: 20220721
  Serious: Yes (Other)
  Sender: FDA-Public Use
  Company Number: US-Shilpa Medicare Limited-SML-US-2022-00540

PATIENT
  Age: 57 Year
  Sex: Male

DRUGS (5)
  1. CAPECITABINE [Suspect]
     Active Substance: CAPECITABINE
     Indication: Rectal cancer stage III
  2. FLUOROURACIL [Suspect]
     Active Substance: FLUOROURACIL
     Indication: Rectal cancer stage III
  3. LEUCOVORIN [Suspect]
     Active Substance: LEUCOVORIN
     Indication: Rectal cancer stage III
  4. OXALIPLATIN [Suspect]
     Active Substance: OXALIPLATIN
     Indication: Rectal cancer stage III
  5. OXALIPLATIN [Suspect]
     Active Substance: OXALIPLATIN
     Dosage: DOSE REDUCED

REACTIONS (3)
  - Recall phenomenon [Not Recovered/Not Resolved]
  - Myositis [Not Recovered/Not Resolved]
  - Peripheral sensorimotor neuropathy [Recovering/Resolving]
